FAERS Safety Report 8337657-9 (Version None)
Quarter: 2012Q2

REPORT INFORMATION
  Report Type: 
  Country: None (occurrence: None)
  Receive Date: 20120504
  Receipt Date: 20120504
  Transmission Date: 20120825
  Serious: Yes (Life-Threatening, Hospitalization, Disabling)
  Sender: FDA-Public Use
  Company Number: None

PATIENT
  Sex: Female
  Weight: 62.59 kg

DRUGS (3)
  1. SODIUM CHLORIDE 0.9% [Suspect]
     Dosage: |DOSAGETEXT: N.S. 0.9%|
  2. PITOCIN [Suspect]
     Indication: PROPHYLAXIS
     Dosage: |DOSAGETEXT: 30 U||STRENGTH: 30 UNITS IN 500 ML 0.9% NACL||FREQ: PER HOUR||ROUTE: INTRAVENOUS DRIP|
     Route: 041
     Dates: start: 20120425, end: 20120425
  3. PITOCIN [Suspect]
     Indication: POSTPARTUM HAEMORRHAGE
     Dosage: |DOSAGETEXT: 30 U||STRENGTH: 30 UNITS IN 500 ML 0.9% NACL||FREQ: PER HOUR||ROUTE: INTRAVENOUS DRIP|
     Route: 041
     Dates: start: 20120425, end: 20120425

REACTIONS (8)
  - FEELING HOT [None]
  - UNRESPONSIVE TO STIMULI [None]
  - PRODUCT COMPOUNDING QUALITY ISSUE [None]
  - PRODUCT QUALITY ISSUE [None]
  - BLOOD MAGNESIUM INCREASED [None]
  - HYPERVENTILATION [None]
  - AGGRESSION [None]
  - DYSPNOEA [None]
